FAERS Safety Report 15256734 (Version 1)
Quarter: 2018Q3

REPORT INFORMATION
  Report Type: Spontaneous
  Country: US (occurrence: US)
  Receive Date: 20180808
  Receipt Date: 20180808
  Transmission Date: 20181010
  Serious: Yes (Other)
  Sender: FDA-Public Use
  Company Number: US-BAUSCH-BL-2018-021199

PATIENT
  Age: 65 Year
  Sex: Male

DRUGS (1)
  1. SILIQ [Suspect]
     Active Substance: BRODALUMAB
     Indication: PRODUCT USED FOR UNKNOWN INDICATION
     Dosage: DOSED AS A SINGLE 210 MG INJECTION WEEKLY FOR THE FIRST 3 WEEKS
     Route: 065
     Dates: start: 20180726

REACTIONS (3)
  - Endocarditis [Unknown]
  - Sepsis [Unknown]
  - Renal disorder [Unknown]

NARRATIVE: CASE EVENT DATE: 20180730
